FAERS Safety Report 8455093-1 (Version None)
Quarter: 2012Q2

REPORT INFORMATION
  Report Type: 
  Country: None (occurrence: None)
  Receive Date: 20120621
  Receipt Date: 20120615
  Transmission Date: 20120825
  Serious: No
  Sender: FDA-Public Use
  Company Number: US-PFIZER INC-2011211601

PATIENT
  Sex: Female

DRUGS (1)
  1. XALATAN [Suspect]
     Indication: OPEN ANGLE GLAUCOMA
     Dosage: 0.005 %, EVERY BED TIME BOTH EYES
     Route: 047

REACTIONS (7)
  - SCAB [None]
  - LACRIMATION INCREASED [None]
  - SWELLING [None]
  - PRURITUS [None]
  - CONJUNCTIVITIS [None]
  - VISION BLURRED [None]
  - EYE IRRITATION [None]
